FAERS Safety Report 13256728 (Version 1)
Quarter: 2017Q1

REPORT INFORMATION
  Report Type: Spontaneous
  Country: US (occurrence: US)
  Receive Date: 20170220
  Receipt Date: 20170220
  Transmission Date: 20170428
  Serious: Yes (Hospitalization, Disabling)
  Sender: FDA-Public Use
  Company Number: None

PATIENT
  Age: 11 Year
  Sex: Male
  Weight: 27 kg

DRUGS (7)
  1. MIRALAX [Suspect]
     Active Substance: POLYETHYLENE GLYCOL 3350
     Indication: CONSTIPATION
     Dosage: ?          QUANTITY:1 CAPFULL;?
     Route: 048
     Dates: start: 20060101, end: 20150901
  2. GUANFACINE. [Concomitant]
     Active Substance: GUANFACINE
  3. ABILIFY [Concomitant]
     Active Substance: ARIPIPRAZOLE
  4. KETAMINE [Concomitant]
     Active Substance: KETAMINE
  5. TRAZODONE [Concomitant]
     Active Substance: TRAZODONE HYDROCHLORIDE
  6. MELATONIN [Concomitant]
     Active Substance: MELATONIN
  7. PROBIOTIC [Concomitant]
     Active Substance: PROBIOTICS NOS

REACTIONS (9)
  - Neurological symptom [None]
  - Autism [None]
  - Obsessive-compulsive disorder [None]
  - Catatonia [None]
  - Mania [None]
  - Tic [None]
  - Abasia [None]
  - Drooling [None]
  - Condition aggravated [None]

NARRATIVE: CASE EVENT DATE: 20150106
